FAERS Safety Report 8291857-5 (Version None)
Quarter: 2012Q2

REPORT INFORMATION
  Report Type: 
  Country: None (occurrence: None)
  Receive Date: 20120417
  Receipt Date: 20120410
  Transmission Date: 20120825
  Serious: Yes (Hospitalization, Other)
  Sender: FDA-Public Use
  Company Number: US-ELI_LILLY_AND_COMPANY-US201110006796

PATIENT
  Sex: Female
  Weight: 84.807 kg

DRUGS (17)
  1. LEVOTHYROXINE SODIUM [Concomitant]
  2. XANAX [Concomitant]
  3. VICODIN [Concomitant]
  4. POTASSIUM [Concomitant]
  5. FORTEO [Suspect]
     Dosage: 20 UG, QD
     Route: 065
     Dates: start: 20110901, end: 20120108
  6. FORTEO [Suspect]
     Dosage: 20 UG, QD
     Dates: start: 20120301
  7. FUROSEMIDE [Concomitant]
  8. FISH OIL [Concomitant]
  9. NORTRIPTYLINE HCL [Concomitant]
  10. ZOLPIDEM [Concomitant]
  11. FORTEO [Suspect]
     Indication: OSTEOPOROSIS
     Dosage: 20 UG, QD
     Route: 065
     Dates: start: 20110901
  12. FORTEO [Suspect]
     Dosage: 20 UG, QD
     Dates: start: 20120301
  13. CALCIUM W/VITAMIN D NOS [Concomitant]
  14. PRAVASTATIN [Concomitant]
  15. CITALOPRAM [Concomitant]
  16. DAYPRO [Concomitant]
  17. M.V.I. [Concomitant]

REACTIONS (5)
  - ARTHRALGIA [None]
  - BACK PAIN [None]
  - SLEEP DISORDER DUE TO A GENERAL MEDICAL CONDITION [None]
  - BONE PAIN [None]
  - PAIN [None]
